FAERS Safety Report 7965890-4 (Version None)
Quarter: 2011Q4

REPORT INFORMATION
  Report Type: 
  Country: None (occurrence: None)
  Receive Date: 20111208
  Receipt Date: 20111130
  Transmission Date: 20120403
  Serious: Yes (Hospitalization)
  Sender: FDA-Public Use
  Company Number: JP-VIIV HEALTHCARE LIMITED-A0956969B

PATIENT
  Sex: Male
  Weight: 2 kg

DRUGS (9)
  1. MAGNESIUM SULFATE [Concomitant]
     Route: 064
  2. EFAVIRENZ [Concomitant]
     Route: 064
     Dates: start: 20100727, end: 20100809
  3. RITODRINE HYDROCHLORIDE [Concomitant]
     Route: 064
     Dates: start: 20100621, end: 20100623
  4. RETROVIR [Suspect]
     Indication: HIV INFECTION
     Dosage: 2AMP PER DAY
     Route: 064
     Dates: start: 20100629, end: 20100629
  5. REYATAZ [Suspect]
     Indication: HIV INFECTION
     Dosage: 300MG PER DAY
     Route: 064
     Dates: start: 20091101, end: 20091222
  6. KALETRA [Suspect]
     Indication: HIV INFECTION
     Dosage: 2TAB TWICE PER DAY
     Route: 064
     Dates: start: 20091223
  7. RITODRINE HYDROCHLORIDE [Concomitant]
     Route: 064
  8. NORVIR [Suspect]
     Indication: HIV INFECTION
     Dosage: 100MG PER DAY
     Route: 064
     Dates: start: 20091101, end: 20091222
  9. EPZICOM [Suspect]
     Indication: HIV INFECTION
     Dosage: 1TAB PER DAY
     Route: 064
     Dates: start: 20091101, end: 20110208

REACTIONS (3)
  - FOETAL EXPOSURE DURING PREGNANCY [None]
  - ANAEMIA NEONATAL [None]
  - NEONATAL TACHYPNOEA [None]
